FAERS Safety Report 12278126 (Version 2)
Quarter: 2017Q1

REPORT INFORMATION
  Report Type: Report from Study
  Country: US (occurrence: US)
  Receive Date: 20160418
  Receipt Date: 20170125
  Transmission Date: 20170428
  Serious: Yes (Other)
  Sender: FDA-Public Use
  Company Number: PHEH2016US009273

PATIENT
  Age: 63 Year
  Sex: Female

DRUGS (1)
  1. GILENYA [Suspect]
     Active Substance: FINGOLIMOD HYDROCHLORIDE
     Indication: MULTIPLE SCLEROSIS
     Dosage: 0.5 MG, QD
     Route: 048
     Dates: start: 201602, end: 20160408

REACTIONS (4)
  - Visual impairment [Recovered/Resolved]
  - Vision blurred [Unknown]
  - Macular oedema [Recovered/Resolved]
  - Visual brightness [Unknown]

NARRATIVE: CASE EVENT DATE: 20160320
